FAERS Safety Report 10056495 (Version 3)
Quarter: 2014Q2

REPORT INFORMATION
  Report Type: Report from Study
  Country: JP (occurrence: JP)
  Receive Date: 20140403
  Receipt Date: 20140528
  Transmission Date: 20141212
  Serious: Yes (Life-Threatening, Hospitalization)
  Sender: FDA-Public Use
  Company Number: JP-SA-2014SA040795

PATIENT
  Age: 18 Year
  Sex: Male
  Weight: 71 kg

DRUGS (4)
  1. THYMOGLOBULINE [Suspect]
     Indication: APLASTIC ANAEMIA
     Route: 042
     Dates: start: 20130730, end: 20130803
  2. NEORAL [Concomitant]
     Indication: APLASTIC ANAEMIA
     Dates: start: 20130730
  3. DEPAKENE-R [Concomitant]
     Indication: EPILEPSY
     Dates: start: 20130222
  4. CEPHARANTHIN [Concomitant]
     Indication: APLASTIC ANAEMIA
     Dates: start: 20130706, end: 20130823

REACTIONS (2)
  - Refractory cytopenia with multilineage dysplasia [Not Recovered/Not Resolved]
  - Pyrexia [Recovered/Resolved]
